FAERS Safety Report 13578966 (Version 2)
Quarter: 2017Q3

REPORT INFORMATION
  Report Type: Spontaneous
  Country: US (occurrence: US)
  Receive Date: 20170524
  Receipt Date: 20170830
  Transmission Date: 20171127
  Serious: No
  Sender: FDA-Public Use
  Company Number: US-JAZZ-2017-US-005038

PATIENT
  Age: 44 Year
  Sex: Female

DRUGS (32)
  1. XYREM [Suspect]
     Active Substance: SODIUM OXYBATE
     Indication: NARCOLEPSY
     Dosage: 2.25 G, BID
     Route: 048
     Dates: start: 201601, end: 201601
  2. SALONPAS                           /00735901/ [Concomitant]
     Active Substance: MENTHOL\METHYL SALICYLATE
  3. TROKENDI [Concomitant]
     Active Substance: TOPIRAMATE
  4. BENGAY                             /00735901/ [Concomitant]
  5. TURMERIC                           /01079601/ [Concomitant]
     Active Substance: HERBALS\TURMERIC
  6. ZYRTEC [Concomitant]
     Active Substance: CETIRIZINE HYDROCHLORIDE
  7. CELEBREX [Concomitant]
     Active Substance: CELECOXIB
  8. XYREM [Suspect]
     Active Substance: SODIUM OXYBATE
     Indication: CATAPLEXY
     Dosage: DOSE ADJUSTMENT
     Route: 048
     Dates: start: 201601, end: 201608
  9. VENTOLIN HFA [Concomitant]
     Active Substance: ALBUTEROL SULFATE
  10. ACETAZOLAMIDE. [Concomitant]
     Active Substance: ACETAZOLAMIDE
  11. BENADRYL ALLERGY [Concomitant]
     Active Substance: DIPHENHYDRAMINE HYDROCHLORIDE
  12. TYLENOL EXTRA STRENGTH [Concomitant]
     Active Substance: ACETAMINOPHEN
  13. LIDOCAINE. [Concomitant]
     Active Substance: LIDOCAINE
  14. MODAFINIL. [Concomitant]
     Active Substance: MODAFINIL
  15. CYCLOBENZAPRINE. [Concomitant]
     Active Substance: CYCLOBENZAPRINE
  16. PENICILLIN                         /00000901/ [Concomitant]
     Active Substance: PENICILLIN G
  17. LYRICA [Concomitant]
     Active Substance: PREGABALIN
  18. OMEPRAZOLE. [Concomitant]
     Active Substance: OMEPRAZOLE
  19. FAMOTIDINE. [Concomitant]
     Active Substance: FAMOTIDINE
  20. LORAZEPAM. [Concomitant]
     Active Substance: LORAZEPAM
  21. XYREM [Suspect]
     Active Substance: SODIUM OXYBATE
     Dosage: 3 G, BID
     Route: 048
     Dates: start: 201608
  22. DICLOFENAC SODIUM. [Concomitant]
     Active Substance: DICLOFENAC SODIUM
  23. COLACE [Concomitant]
     Active Substance: DOCUSATE SODIUM
  24. NORCO [Concomitant]
     Active Substance: ACETAMINOPHEN\HYDROCODONE BITARTRATE
  25. AUGMENTIN [Concomitant]
     Active Substance: AMOXICILLIN\CLAVULANATE POTASSIUM
  26. DEXEDRINE [Concomitant]
     Active Substance: DEXTROAMPHETAMINE SULFATE
  27. METOPROLOL TARTRATE. [Concomitant]
     Active Substance: METOPROLOL TARTRATE
  28. FLONASE                            /00908302/ [Concomitant]
     Active Substance: MOMETASONE FUROATE
  29. DULOXETINE HCL [Concomitant]
     Active Substance: DULOXETINE HYDROCHLORIDE
  30. SAVELLA [Concomitant]
     Active Substance: MILNACIPRAN HYDROCHLORIDE
  31. HYDROCODONE BITARTRATE AND ACETAMINOPHEN [Concomitant]
     Active Substance: ACETAMINOPHEN\HYDROCODONE BITARTRATE
  32. NODOZ [Concomitant]
     Active Substance: CAFFEINE

REACTIONS (6)
  - Fibromyalgia [Not Recovered/Not Resolved]
  - Arthritis [Not Recovered/Not Resolved]
  - Arthropathy [Not Recovered/Not Resolved]
  - Pain [Not Recovered/Not Resolved]
  - Cartilage injury [Not Recovered/Not Resolved]
  - Blepharospasm [Not Recovered/Not Resolved]

NARRATIVE: CASE EVENT DATE: 201704
